FAERS Safety Report 11230095 (Version 2)
Quarter: 2015Q3

REPORT INFORMATION
  Report Type: Report from Study
  Country: GB (occurrence: GB)
  Receive Date: 20150701
  Receipt Date: 20150709
  Transmission Date: 20151125
  Serious: Yes (Other)
  Sender: FDA-Public Use
  Company Number: GB-AUROBINDO-AUR-APL-2015-05619

PATIENT
  Age: 40 Year
  Sex: Female

DRUGS (3)
  1. TOPIRAMATE. [Interacting]
     Active Substance: TOPIRAMATE
     Dosage: 200 MG, DAILY
     Route: 065
  2. TOPIRAMATE. [Suspect]
     Active Substance: TOPIRAMATE
     Indication: SEIZURE
     Dosage: 425 MG, DAILY
     Route: 065
  3. LACOSAMIDE [Interacting]
     Active Substance: LACOSAMIDE
     Indication: SEIZURE
     Dosage: 500 MG, DAILY
     Route: 065

REACTIONS (2)
  - Fatigue [Unknown]
  - Lethargy [Unknown]
